FAERS Safety Report 17678867 (Version 1)
Quarter: 2020Q2

REPORT INFORMATION
  Report Type: Spontaneous
  Country: DE (occurrence: DE)
  Receive Date: 20200417
  Receipt Date: 20200417
  Transmission Date: 20200714
  Serious: Yes (Death, Other)
  Sender: FDA-Public Use
  Company Number: DE-AUROBINDO-AUR-APL-2020-019386

PATIENT
  Age: 45 Year
  Sex: Male
  Weight: 52 kg

DRUGS (3)
  1. BUPIVACAINE SOLUTION FOR INJECTION [Suspect]
     Active Substance: BUPIVACAINE
     Indication: ABDOMINAL PAIN
     Dosage: 360 MILLIGRAM, ONCE A DAY
     Route: 008
  2. MORPHINE HYDROCHLORIDE [Concomitant]
     Active Substance: MORPHINE HYDROCHLORIDE
     Indication: ABDOMINAL PAIN
     Dosage: 7 MILLIGRAM, ONCE A DAY
     Route: 008
  3. EPINEPHRINE;LIDOCAINE [Concomitant]
     Indication: CATHETER PLACEMENT
     Dosage: 3 MILLILITER,3 ML LIDOCAINE 2% WITH EPINEPHRINE (1:200,000)
     Route: 037

REACTIONS (1)
  - Soft tissue necrosis [Fatal]
